FAERS Safety Report 14848464 (Version 1)
Quarter: 2018Q2

REPORT INFORMATION
  Report Type: Report from Study
  Country: US (occurrence: US)
  Receive Date: 20180504
  Receipt Date: 20180504
  Transmission Date: 20180711
  Serious: Yes (Other)
  Sender: FDA-Public Use
  Company Number: US-TEVA-2018-US-845958

PATIENT
  Age: 47 Year
  Sex: Male

DRUGS (1)
  1. COPAXONE [Suspect]
     Active Substance: GLATIRAMER ACETATE
     Indication: MULTIPLE SCLEROSIS
     Route: 058
     Dates: start: 20171111, end: 20180131

REACTIONS (10)
  - Muscle spasms [Unknown]
  - Lip swelling [Unknown]
  - Tremor [Unknown]
  - Loss of consciousness [Recovered/Resolved]
  - Anaphylactic shock [Unknown]
  - Dysphonia [Unknown]
  - Throat tightness [Unknown]
  - Vertigo [Unknown]
  - Nasopharyngitis [Recovering/Resolving]
  - Feeling abnormal [Recovered/Resolved]

NARRATIVE: CASE EVENT DATE: 201801
